FAERS Safety Report 19121666 (Version 1)
Quarter: 2021Q2

REPORT INFORMATION
  Report Type: Spontaneous
  Country: US (occurrence: US)
  Receive Date: 20210412
  Receipt Date: 20210412
  Transmission Date: 20210717
  Serious: Yes (Other)
  Sender: FDA-Public Use
  Company Number: None

PATIENT
  Age: 71 Year
  Sex: Male
  Weight: 110.25 kg

DRUGS (6)
  1. DIAZEPAM 5 MG TAB; SUB FOR VALIUM 5 MG TABLET [Suspect]
     Active Substance: DIAZEPAM
     Indication: PREMEDICATION
     Dosage: ?          QUANTITY:1 TABLET(S);?
     Route: 048
     Dates: start: 20210409, end: 20210409
  2. ASPIRIN 81MG [Concomitant]
     Active Substance: ASPIRIN
  3. ROSUVASTATIN. [Concomitant]
     Active Substance: ROSUVASTATIN
  4. CEPHALEXIN 500 MG CAP, SUB FOR KEFLEX 500MG CAPSULE [Suspect]
     Active Substance: CEPHALEXIN
     Indication: VARICOSE VEIN OPERATION
     Dosage: ?          QUANTITY:1 CAPSULE(S);?
     Route: 048
     Dates: start: 20210409, end: 20210409
  5. CLOPIDOGREL BISULFATE. [Concomitant]
     Active Substance: CLOPIDOGREL BISULFATE
  6. GABAPENTIN. [Concomitant]
     Active Substance: GABAPENTIN

REACTIONS (4)
  - Pruritus [None]
  - Urticaria [None]
  - Product dose omission in error [None]
  - Wrong schedule [None]

NARRATIVE: CASE EVENT DATE: 20210409
